FAERS Safety Report 12621374 (Version 1)
Quarter: 2016Q3

REPORT INFORMATION
  Report Type: Spontaneous
  Country: US (occurrence: None)
  Receive Date: 20160803
  Receipt Date: 20160803
  Transmission Date: 20161109
  Serious: Yes (Hospitalization)
  Sender: FDA-Public Use
  Company Number: None

PATIENT
  Age: 72 Year
  Sex: Female
  Weight: 73 kg

DRUGS (1)
  1. CISPLATIN. [Suspect]
     Active Substance: CISPLATIN
     Dates: end: 20160711

REACTIONS (10)
  - Nausea [None]
  - Drug ineffective [None]
  - Vomiting [None]
  - Diarrhoea [None]
  - Dehydration [None]
  - Joint injury [None]
  - Balance disorder [None]
  - Fall [None]
  - Head injury [None]
  - Faeces discoloured [None]

NARRATIVE: CASE EVENT DATE: 20160729
